FAERS Safety Report 15492252 (Version 2)
Quarter: 2019Q1

REPORT INFORMATION
  Report Type: Other
  Country: CA (occurrence: CA)
  Receive Date: 20181012
  Receipt Date: 20190122
  Transmission Date: 20190417
  Serious: Yes (Death, Life-Threatening, Other)
  Sender: FDA-Public Use
  Company Number: CA-PFIZER INC-2018409490

PATIENT
  Sex: Female

DRUGS (2)
  1. HYDROMORPHONE HYDROCHLORIDE. [Suspect]
     Active Substance: HYDROMORPHONE HYDROCHLORIDE
     Indication: PALLIATIVE CARE
     Dosage: 10 MG, UNK
     Route: 030
  2. MIDAZOLAM [Suspect]
     Active Substance: MIDAZOLAM HYDROCHLORIDE
     Indication: PALLIATIVE CARE
     Dosage: UNK
     Route: 065

REACTIONS (5)
  - Death [Fatal]
  - Wrong product administered [Unknown]
  - Product dispensing error [Unknown]
  - Overdose [Unknown]
  - Respiratory distress [Unknown]
